FAERS Safety Report 8802475 (Version 2)
Quarter: 2012Q4

REPORT INFORMATION
  Report Type: 
  Country: CO (occurrence: CO)
  Receive Date: 20120921
  Receipt Date: 20121001
  Transmission Date: 20130627
  Serious: Yes (Other)
  Sender: FDA-Public Use
  Company Number: CO-ROCHE-1130655

PATIENT
  Age: 10 Year
  Sex: Male

DRUGS (8)
  1. XOLAIR [Suspect]
     Indication: ASTHMA
     Route: 058
  2. XOLAIR [Suspect]
     Route: 058
  3. XOLAIR [Suspect]
     Route: 058
     Dates: start: 20120902
  4. SALMETEROL [Concomitant]
     Dosage: 25/25mcg
     Route: 065
  5. FLUTICASONE [Concomitant]
     Dosage: 25/25mcg
     Route: 065
  6. MONTELUKAST [Concomitant]
     Route: 065
  7. MOMETASONE [Concomitant]
     Route: 065
  8. DESLORATADINE [Concomitant]
     Route: 065

REACTIONS (2)
  - Type III immune complex mediated reaction [Not Recovered/Not Resolved]
  - Drug administration error [Unknown]
